FAERS Safety Report 6649498-9 (Version None)
Quarter: 2010Q1

REPORT INFORMATION
  Report Type: 
  Country: None (occurrence: None)
  Receive Date: 20100324
  Receipt Date: 20100318
  Transmission Date: 20100710
  Serious: Yes (Hospitalization)
  Sender: FDA-Public Use
  Company Number: US-GILEAD-2010-0027915

PATIENT
  Sex: Male
  Weight: 57.204 kg

DRUGS (11)
  1. LETAIRIS [Suspect]
     Indication: PULMONARY ARTERIAL HYPERTENSION
     Route: 048
  2. ASPIRIN [Concomitant]
  3. CELLCEPT [Concomitant]
  4. AMLODIPINE [Concomitant]
  5. NIASPAN ER [Concomitant]
  6. EFFEXOR [Concomitant]
  7. OMEPRAZOLE [Concomitant]
  8. ZINC [Concomitant]
  9. FERROUS GLUCONATE [Concomitant]
  10. MAGNESIUM OXIDE [Concomitant]
  11. VITAMIN ED-ALPH [Concomitant]

REACTIONS (1)
  - LUNG INFECTION [None]
